FAERS Safety Report 8675537 (Version 2)
Quarter: 2013Q2

REPORT INFORMATION
  Report Type: Spontaneous
  Country: DE (occurrence: DE)
  Receive Date: 20120720
  Receipt Date: 20130621
  Transmission Date: 20140414
  Serious: Yes (Disabling)
  Sender: FDA-Public Use
  Company Number: DE-ROCHE-1074631

PATIENT
  Age: 78 Year
  Sex: Female
  Weight: 72 kg

DRUGS (5)
  1. BONVIVA [Suspect]
     Indication: OSTEOPOROSIS
     Route: 042
     Dates: start: 2008
  2. BONVIVA [Suspect]
     Dosage: FIFTEENTH INJECTION
     Route: 042
     Dates: start: 20120427
  3. LANSOPRAZOLE [Concomitant]
     Indication: GASTROOESOPHAGEAL REFLUX DISEASE
     Route: 048
  4. DECORTIN [Concomitant]
     Indication: POLYARTHRITIS
     Route: 048
  5. VOLTAREN RETARD [Concomitant]
     Indication: ARTHRALGIA
     Route: 048

REACTIONS (1)
  - Phlebosclerosis [Not Recovered/Not Resolved]
